FAERS Safety Report 8164139-X (Version None)
Quarter: 2012Q1

REPORT INFORMATION
  Report Type: 
  Country: None (occurrence: None)
  Receive Date: 20120224
  Receipt Date: 20120217
  Transmission Date: 20120608
  Serious: Yes (Other)
  Sender: FDA-Public Use
  Company Number: PHHO2012FR002990

PATIENT
  Sex: Female
  Weight: 82 kg

DRUGS (12)
  1. AFINITOR [Suspect]
     Indication: BREAST CANCER METASTATIC
     Dosage: CODE NOT BROKEN
     Route: 048
     Dates: start: 20111014, end: 20120105
  2. OXYCONTIN [Concomitant]
     Indication: ANALGESIC THERAPY
     Dosage: 2 DF, QD
     Dates: start: 20111020
  3. INNOHEP [Concomitant]
     Dosage: 0.8 ML, QD
  4. COMPARATOR TRASTUZUMAB [Suspect]
     Indication: BREAST CANCER METASTATIC
     Dosage: 2 MG/KG, UNK
     Dates: start: 20111014
  5. PROKINYL [Concomitant]
     Dosage: 2 DF, QD
  6. GABAPENTIN [Concomitant]
     Dosage: 3 DF, QD
  7. BLINDED NO TREATMENT RECEIVED [Suspect]
     Indication: BREAST CANCER METASTATIC
     Dosage: CODE NOT BROKEN
     Route: 048
     Dates: start: 20111014, end: 20120105
  8. OXYCODONE HCL [Concomitant]
     Indication: ANALGESIC THERAPY
     Dosage: UNK
  9. PANTOPRAZOLE SODIUM [Concomitant]
     Dosage: 1 DF, QD
  10. TRANSIPEG [Concomitant]
     Indication: LAXATIVE SUPPORTIVE CARE
     Dosage: 2 DF, QD
  11. BLINDED PLACEBO [Suspect]
     Indication: BREAST CANCER METASTATIC
     Dosage: CODE NOT BROKEN
     Route: 048
     Dates: start: 20111014, end: 20120105
  12. VINORELBINE [Suspect]
     Indication: BREAST CANCER METASTATIC
     Dosage: 25 MG/M2, UNK
     Dates: start: 20111014

REACTIONS (1)
  - SYSTEMIC INFLAMMATORY RESPONSE SYNDROME [None]
